FAERS Safety Report 13817700 (Version 1)
Quarter: 2017Q3

REPORT INFORMATION
  Report Type: Spontaneous
  Country: TR (occurrence: TR)
  Receive Date: 20170731
  Receipt Date: 20170731
  Transmission Date: 20171127
  Serious: Yes (Other)
  Sender: FDA-Public Use
  Company Number: TR-XIROMED, LLC-XIRO20170313

PATIENT
  Age: 29 Year
  Sex: Female

DRUGS (1)
  1. LANSOPRAZOLE. [Suspect]
     Active Substance: LANSOPRAZOLE
     Indication: DRUG PROVOCATION TEST
     Dosage: INCREASING DOSES (7.5 MG, 15 MG, 30 MG)
     Route: 048

REACTIONS (3)
  - Pruritus allergic [Recovered/Resolved]
  - Therapeutic product cross-reactivity [Recovered/Resolved]
  - Urticaria [Recovered/Resolved]
